FAERS Safety Report 6582867-4 (Version None)
Quarter: 2010Q1

REPORT INFORMATION
  Report Type: 
  Country: None (occurrence: None)
  Receive Date: 20100212
  Receipt Date: 20100212
  Transmission Date: 20100710
  Serious: Yes (Hospitalization)
  Sender: FDA-Public Use
  Company Number: None

PATIENT
  Age: 74 Year
  Sex: Male
  Weight: 105.73 kg

DRUGS (1)
  1. ERLOTINIB [Suspect]
     Indication: HEAD AND NECK CANCER
     Dosage: 150 MG EVERY DAY PO
     Route: 048
     Dates: start: 20090828, end: 20090924

REACTIONS (10)
  - CHILLS [None]
  - COUGH [None]
  - DECREASED APPETITE [None]
  - DIARRHOEA [None]
  - FAECAL INCONTINENCE [None]
  - HEPATIC ENZYME INCREASED [None]
  - NAUSEA [None]
  - PYREXIA [None]
  - VOMITING [None]
  - WHEEZING [None]
